FAERS Safety Report 21689900 (Version 1)
Quarter: 2022Q4

REPORT INFORMATION
  Report Type: Spontaneous
  Country: IT (occurrence: IT)
  Receive Date: 20221206
  Receipt Date: 20221206
  Transmission Date: 20230113
  Serious: Yes (Hospitalization, Other)
  Sender: FDA-Public Use
  Company Number: IT-BRISTOL-MYERS SQUIBB COMPANY-2022-014260

PATIENT
  Age: 57 Year
  Sex: Female
  Weight: 56 kg

DRUGS (19)
  1. DEXAMETHASONE [Suspect]
     Active Substance: DEXAMETHASONE
     Indication: Plasma cell myeloma
     Route: 042
     Dates: start: 20220321, end: 20220321
  2. DARATUMUMAB [Suspect]
     Active Substance: DARATUMUMAB
     Indication: Plasma cell myeloma
     Route: 042
     Dates: start: 20210321
  3. LENALIDOMIDE [Suspect]
     Active Substance: LENALIDOMIDE
     Indication: Plasma cell myeloma
     Route: 048
     Dates: start: 20220321, end: 20220326
  4. CHOLECALCIFEROL [Concomitant]
     Active Substance: CHOLECALCIFEROL
     Indication: Osteoporosis prophylaxis
     Dosage: 50000 U
     Route: 048
     Dates: start: 20190124
  5. LEVOFLOXACIN [Concomitant]
     Active Substance: LEVOFLOXACIN
     Indication: Adverse event
     Dosage: 500 MG
     Route: 048
     Dates: start: 20220325, end: 20220327
  6. IBUPROFEN [Concomitant]
     Active Substance: IBUPROFEN
     Indication: Pain
  7. FILGRASTIM [Concomitant]
     Active Substance: FILGRASTIM
     Indication: Neutropenia
     Dosage: 300 UG, FREQUENCY : PRN
     Route: 058
     Dates: start: 20220322
  8. ACYCLOVIR [Concomitant]
     Active Substance: ACYCLOVIR
     Indication: Prophylaxis
     Dosage: 400 MG
     Route: 048
     Dates: start: 20181214
  9. ALPRAZOLAM [Concomitant]
     Active Substance: ALPRAZOLAM
     Indication: Anxiety
     Dosage: 10 GRAM, FREQUENCY : PRN
     Route: 048
     Dates: start: 20200122
  10. BERLOCOMBIN [Concomitant]
     Indication: Prophylaxis
     Route: 048
     Dates: start: 20220321
  11. HYDROCORTISONE [Concomitant]
     Active Substance: HYDROCORTISONE
     Indication: Bone pain
     Dosage: 100 MG, FREQUENCY : ONCE
     Route: 042
     Dates: start: 20220321, end: 20220321
  12. LORATADINE [Concomitant]
     Active Substance: LORATADINE
     Indication: Prophylaxis
     Dosage: 10 MG, FREQUENCY : PRN
     Route: 048
     Dates: start: 20220321, end: 20220321
  13. ASPIRIN [Concomitant]
     Active Substance: ASPIRIN
     Indication: Prophylaxis
     Dosage: 100 MG, FREQUENCY : PRN
     Route: 048
     Dates: start: 20220321
  14. ACETAMINOPHEN [Concomitant]
     Active Substance: ACETAMINOPHEN
     Indication: Prophylaxis
     Dosage: 1000 MG, FREQUENCY : ONCE
     Route: 048
     Dates: start: 20220321, end: 20220321
  15. ACETAMINOPHEN [Concomitant]
     Active Substance: ACETAMINOPHEN
     Dosage: 1000 MG, FREQUENCY : PRN
     Route: 048
     Dates: start: 20190103
  16. METOCLOPRAMIDE [Concomitant]
     Active Substance: METOCLOPRAMIDE
     Indication: Nausea
     Dosage: 10 MG, FREQUENCY : ONCE
     Route: 042
     Dates: start: 20220321, end: 20220321
  17. ONDANSETRON [Concomitant]
     Active Substance: ONDANSETRON
     Indication: Product used for unknown indication
     Dosage: 4 MG, FREQUENCY : PRN
     Route: 048
     Dates: start: 20220131, end: 20220320
  18. ONDANSETRON [Concomitant]
     Active Substance: ONDANSETRON
     Dosage: 4 MG, FREQUENCY : ONCE
     Route: 042
     Dates: start: 20220321, end: 20220321
  19. MONTELUKAST [Concomitant]
     Active Substance: MONTELUKAST SODIUM
     Indication: Prophylaxis
     Dosage: 10 MG, FREQUENCY : PRN
     Route: 048
     Dates: start: 20220321, end: 20220321

REACTIONS (1)
  - Bronchopulmonary aspergillosis [Recovered/Resolved]

NARRATIVE: CASE EVENT DATE: 20220326
